FAERS Safety Report 8177150-X (Version None)
Quarter: 2012Q1

REPORT INFORMATION
  Report Type: 
  Country: None (occurrence: None)
  Receive Date: 20120301
  Receipt Date: 20120223
  Transmission Date: 20120608
  Serious: Yes (Other)
  Sender: FDA-Public Use
  Company Number: FR-GLAXOSMITHKLINE-B0783564A

PATIENT
  Sex: Male

DRUGS (6)
  1. PAROXETINE HYDROCHLORIDE [Suspect]
     Indication: DEPRESSION
     Dosage: 1UNIT PER DAY
     Route: 048
     Dates: start: 20120101, end: 20120110
  2. DESLORATADINE [Suspect]
     Indication: PRODUCT USED FOR UNKNOWN INDICATION
     Dosage: 5MG PER DAY
     Route: 048
  3. TRIMEPRAZINE TARTRATE [Suspect]
     Indication: DEPRESSION
     Dosage: 20DROP PER DAY
     Route: 048
     Dates: start: 20120101, end: 20120110
  4. PRAZEPAM [Suspect]
     Indication: DEPRESSION
     Dosage: 1UNIT THREE TIMES PER DAY
     Route: 048
     Dates: start: 20120101, end: 20120110
  5. TESTOSTERONE [Concomitant]
     Route: 065
  6. NASONEX [Suspect]
     Indication: PRODUCT USED FOR UNKNOWN INDICATION
     Route: 045

REACTIONS (2)
  - DYSURIA [None]
  - HICCUPS [None]
